FAERS Safety Report 21907054 (Version 2)
Quarter: 2023Q1

REPORT INFORMATION
  Report Type: Spontaneous
  Country: US (occurrence: US)
  Receive Date: 20230125
  Receipt Date: 20230220
  Transmission Date: 20230417
  Serious: No
  Sender: FDA-Public Use
  Company Number: US-GBT-019549

PATIENT
  Age: 33 Year
  Sex: Male

DRUGS (1)
  1. OXBRYTA [Suspect]
     Active Substance: VOXELOTOR
     Indication: Sickle cell disease
     Route: 048
     Dates: start: 202301

REACTIONS (5)
  - Priapism [Unknown]
  - Nausea [Recovering/Resolving]
  - Product dose omission issue [Unknown]
  - Abdominal pain [Unknown]
  - Pain [Unknown]

NARRATIVE: CASE EVENT DATE: 20230101
